FAERS Safety Report 7128432-1 (Version None)
Quarter: 2010Q4

REPORT INFORMATION
  Report Type: 
  Country: None (occurrence: None)
  Receive Date: 20101130
  Receipt Date: 20101119
  Transmission Date: 20110411
  Serious: Yes (Other)
  Sender: FDA-Public Use
  Company Number: SE-PURDUE-GBR-2010-0007402

PATIENT
  Sex: Female

DRUGS (2)
  1. DOLCONTIN [Suspect]
     Indication: PRODUCT USED FOR UNKNOWN INDICATION
     Dosage: UNK
     Route: 065
     Dates: start: 20101001
  2. CELEBRA [Suspect]
     Indication: PRODUCT USED FOR UNKNOWN INDICATION
     Dosage: UNK
     Route: 005
     Dates: start: 20101001

REACTIONS (2)
  - DIPLOPIA [None]
  - REFRACTION DISORDER [None]
